FAERS Safety Report 8416883-4 (Version None)
Quarter: 2012Q2

REPORT INFORMATION
  Report Type: 
  Country: None (occurrence: None)
  Receive Date: 20120606
  Receipt Date: 20120531
  Transmission Date: 20120825
  Serious: No
  Sender: FDA-Public Use
  Company Number: US-PFIZER INC-2012131715

PATIENT
  Sex: Male
  Weight: 93.424 kg

DRUGS (2)
  1. LATANOPROST [Suspect]
     Indication: GLAUCOMA
     Dosage: UNK
     Dates: start: 20120201
  2. XALATAN [Suspect]
     Indication: GLAUCOMA
     Dosage: 1 GTT, 1X/DAY
     Route: 047
     Dates: start: 20040101

REACTIONS (3)
  - EYE IRRITATION [None]
  - EYE PRURITUS [None]
  - INTRAOCULAR PRESSURE INCREASED [None]
